FAERS Safety Report 15848190 (Version 3)
Quarter: 2019Q1

REPORT INFORMATION
  Report Type: Spontaneous
  Country: US (occurrence: US)
  Receive Date: 20190121
  Receipt Date: 20190301
  Transmission Date: 20190417
  Serious: No
  Sender: FDA-Public Use
  Company Number: US-PFIZER INC-2019009813

PATIENT
  Age: 69 Year
  Sex: Female

DRUGS (9)
  1. LYRICA [Suspect]
     Active Substance: PREGABALIN
     Indication: NEUROPATHY PERIPHERAL
     Dosage: UNK, 2X/DAY
  2. LYRICA [Suspect]
     Active Substance: PREGABALIN
     Indication: PAIN
  3. LYRICA [Suspect]
     Active Substance: PREGABALIN
     Indication: PAIN IN EXTREMITY
  4. LYRICA [Suspect]
     Active Substance: PREGABALIN
     Indication: ARTHRALGIA
  5. OXYTOCIN. [Suspect]
     Active Substance: OXYTOCIN
     Indication: PAIN
     Dosage: UNK, 3X/DAY
  6. HYDRENE [Suspect]
     Active Substance: HYDROCHLOROTHIAZIDE\TRIAMTERENE
     Indication: PAIN
     Dosage: UNK, 2X/DAY
  7. LAMICTAL [Suspect]
     Active Substance: LAMOTRIGINE
     Indication: PAIN
     Dosage: UNK, 1X/DAY
  8. LYRICA [Suspect]
     Active Substance: PREGABALIN
     Indication: BACK PAIN
  9. HYDRENE [Suspect]
     Active Substance: HYDROCHLOROTHIAZIDE\TRIAMTERENE
     Dosage: UNK, 3X/DAY

REACTIONS (4)
  - Malaise [Not Recovered/Not Resolved]
  - Muscle spasms [Not Recovered/Not Resolved]
  - Gait inability [Not Recovered/Not Resolved]
  - Drug ineffective [Not Recovered/Not Resolved]
